FAERS Safety Report 25710571 (Version 1)
Quarter: 2025Q3

REPORT INFORMATION
  Report Type: Spontaneous
  Country: US (occurrence: None)
  Receive Date: 20250820
  Receipt Date: 20250820
  Transmission Date: 20251020
  Serious: Yes (Death)
  Sender: FDA-CTU
  Company Number: None

PATIENT
  Age: 73 Year
  Sex: Male

DRUGS (11)
  1. TACROLIMUS [Suspect]
     Active Substance: TACROLIMUS
     Indication: Prophylaxis against transplant rejection
     Dosage: FREQUENCY : TWICE A DAY;?
     Route: 048
     Dates: start: 20240820
  2. MYCOPHENOLIC ACID [Suspect]
     Active Substance: MYCOPHENOLIC ACID
     Dosage: FREQUENCY : TWICE A DAY;?
     Route: 048
     Dates: start: 20240820
  3. PREDNISONE [Concomitant]
     Active Substance: PREDNISONE
     Dates: start: 20240820
  4. ITRACONAZOLE [Concomitant]
     Active Substance: ITRACONAZOLE
     Dates: start: 20250324
  5. famciclovir 250mg [Concomitant]
     Dates: start: 20250430
  6. mag-oxide 400mg [Concomitant]
     Dates: start: 20250324
  7. OMEPRAZOLE [Concomitant]
     Active Substance: OMEPRAZOLE
     Dates: start: 20240910
  8. prednisone5mg [Concomitant]
     Dates: start: 20250324
  9. ROSUVASTATIN [Concomitant]
     Active Substance: ROSUVASTATIN
     Dates: start: 20250428
  10. SULFAMETHOXAZOLE\TRIMETHOPRIM [Concomitant]
     Active Substance: SULFAMETHOXAZOLE\TRIMETHOPRIM
     Dates: start: 20240806
  11. VALGANCICLOVIR HYDROCHLORIDE [Concomitant]
     Active Substance: VALGANCICLOVIR HYDROCHLORIDE
     Dates: start: 20240806

REACTIONS (2)
  - Idiopathic pulmonary fibrosis [None]
  - Sepsis [None]

NARRATIVE: CASE EVENT DATE: 20250803
